FAERS Safety Report 8536529-4 (Version None)
Quarter: 2012Q3

REPORT INFORMATION
  Report Type: 
  Country: None (occurrence: None)
  Receive Date: 20120712
  Receipt Date: 20120711
  Transmission Date: 20120928
  Serious: Yes (Other)
  Sender: FDA-Public Use
  Company Number: SP05872

PATIENT
  Age: 43 Year
  Sex: Female

DRUGS (1)
  1. XIFAXAN [Suspect]
     Dosage: ORAL
     Route: 048
     Dates: start: 20111101

REACTIONS (1)
  - THROMBOCYTOPENIA [None]
